FAERS Safety Report 6913014-4 (Version None)
Quarter: 2010Q3

REPORT INFORMATION
  Report Type: 
  Country: None (occurrence: None)
  Receive Date: 20100806
  Receipt Date: 20090525
  Transmission Date: 20110219
  Serious: Yes (Other)
  Sender: FDA-Public Use
  Company Number: US-PFIZER INC-2009197340

PATIENT
  Sex: Female

DRUGS (1)
  1. VFEND [Suspect]
     Indication: INFECTION
     Dosage: FREQUENCY: 2X/DAY, EVERY DAY;
     Route: 048

REACTIONS (1)
  - HALLUCINATION [None]
